FAERS Safety Report 14172289 (Version 3)
Quarter: 2018Q2

REPORT INFORMATION
  Report Type: Spontaneous
  Country: FR (occurrence: FR)
  Receive Date: 20171109
  Receipt Date: 20180619
  Transmission Date: 20180711
  Serious: Yes (Hospitalization, Other)
  Sender: FDA-Public Use
  Company Number: FR-SUN PHARMACEUTICAL INDUSTRIES LTD-2017RR-154196

PATIENT
  Sex: Male

DRUGS (3)
  1. OLANZAPINE. [Suspect]
     Active Substance: OLANZAPINE
     Dosage: INCREASED TO 20 MG/DAY
     Route: 064
  2. HALOPERIDOL. [Suspect]
     Active Substance: HALOPERIDOL
     Indication: SCHIZOPHRENIA
     Dosage: 50 MG/WEEK
     Route: 064
  3. OLANZAPINE. [Suspect]
     Active Substance: OLANZAPINE
     Indication: SCHIZOPHRENIA
     Dosage: 15 MG/DAY
     Route: 064

REACTIONS (8)
  - Foetal arrhythmia [Unknown]
  - Foetal exposure during pregnancy [Unknown]
  - Hypotonia neonatal [Unknown]
  - Coma [Unknown]
  - Drug withdrawal syndrome neonatal [Unknown]
  - Tremor neonatal [Unknown]
  - Hypoglycaemia [Unknown]
  - Respiratory distress [Unknown]
